FAERS Safety Report 9582745 (Version 2)
Quarter: 2013Q4

REPORT INFORMATION
  Report Type: Spontaneous
  Country: US (occurrence: US)
  Receive Date: 20131002
  Receipt Date: 20131002
  Transmission Date: 20140711
  Serious: No
  Sender: FDA-Public Use
  Company Number: US-AMGEN-USASP2013040029

PATIENT
  Sex: 0

DRUGS (2)
  1. ENBREL [Suspect]
     Indication: PRODUCT USED FOR UNKNOWN INDICATION
     Dosage: 50 MG, QWK
  2. ENBREL [Suspect]

REACTIONS (5)
  - Hypoaesthesia [Unknown]
  - Dizziness [Unknown]
  - Cough [Unknown]
  - Weight increased [Unknown]
  - Psoriasis [Unknown]
